FAERS Safety Report 11555614 (Version 3)
Quarter: 2015Q4

REPORT INFORMATION
  Report Type: Spontaneous
  Country: HR (occurrence: HR)
  Receive Date: 20150925
  Receipt Date: 20151217
  Transmission Date: 20160304
  Serious: Yes (Hospitalization, Other)
  Sender: FDA-Public Use
  Company Number: HR-BRISTOL-MYERS SQUIBB COMPANY-BMS-2015-064564

PATIENT
  Age: 61 Year
  Sex: Female

DRUGS (8)
  1. LYSODREN [Suspect]
     Active Substance: MITOTANE
     Indication: ADRENOCORTICAL CARCINOMA
     Dosage: 6000 MG, QD
     Route: 048
     Dates: start: 20141226, end: 20150610
  2. CO ARTICEL [Concomitant]
     Indication: HYPERTENSION
     Dosage: 1.25 MG, QD
     Route: 065
  3. PANTOPRAZOLE SODIUM SESQUIHYDRATE [Concomitant]
     Active Substance: PANTOPRAZOLE SODIUM
     Indication: PRODUCT USED FOR UNKNOWN INDICATION
     Dosage: 20 MG, QD
     Route: 065
  4. LYSODREN [Suspect]
     Active Substance: MITOTANE
     Dosage: 3000 MG, QD
     Route: 048
     Dates: start: 20150610, end: 20150812
  5. REGLAN [Concomitant]
     Active Substance: METOCLOPRAMIDE HYDROCHLORIDE
     Indication: PRODUCT USED FOR UNKNOWN INDICATION
     Dosage: 10 MG, TID
     Route: 065
  6. FIXMYSKIN HEALING BALM VANILLA FRAGRANCE [Concomitant]
     Active Substance: HYDROCORTISONE
     Indication: ADRENAL INSUFFICIENCY
     Dosage: 120 MG, BID
     Route: 065
  7. CONCOR [Concomitant]
     Active Substance: BISOPROLOL FUMARATE
     Indication: HYPERTENSION
     Dosage: 2.5 MG, QD
     Route: 065
  8. ASTONIN                            /00042702/ [Concomitant]
     Indication: ADRENAL INSUFFICIENCY
     Dosage: 0.05 MG, QD
     Route: 065

REACTIONS (8)
  - Weight decreased [Unknown]
  - Amnesia [Recovered/Resolved]
  - Cognitive disorder [Recovering/Resolving]
  - Uterine haemorrhage [Unknown]
  - Aphasia [Recovered/Resolved]
  - Disorientation [Recovered/Resolved]
  - Decreased appetite [Unknown]
  - Endometrial hyperplasia [Unknown]

NARRATIVE: CASE EVENT DATE: 201503
